FAERS Safety Report 4267133-4 (Version None)
Quarter: 2004Q1

REPORT INFORMATION
  Report Type: 
  Country: None (occurrence: None)
  Receive Date: 20040107
  Receipt Date: 20031209
  Transmission Date: 20041129
  Serious: Yes (Death)
  Sender: FDA-Public Use
  Company Number: 20031649

PATIENT
  Sex: Female

DRUGS (3)
  1. LIORESAL [Suspect]
     Indication: MUSCLE SPASTICITY
     Dosage: MCG, DAILY, INTRATHECAL
     Route: 037
  2. ANTIBIOTICS [Concomitant]
  3. DEXAMETHASONE [Concomitant]

REACTIONS (8)
  - COMA [None]
  - DYSPNOEA [None]
  - HYPERTONIA [None]
  - HYPOTONIA [None]
  - MEDICAL DEVICE COMPLICATION [None]
  - MEDICAL DEVICE IMPLANTATION [None]
  - PROTEUS INFECTION [None]
  - UROSEPSIS [None]
